FAERS Safety Report 9441122 (Version 2)
Quarter: 2013Q4

REPORT INFORMATION
  Report Type: Report from Study
  Country: US (occurrence: US)
  Receive Date: 20130805
  Receipt Date: 20131111
  Transmission Date: 20140711
  Serious: Yes (Other)
  Sender: FDA-Public Use
  Company Number: US-VIIV HEALTHCARE LIMITED-B0901043A

PATIENT
  Age: 49 Year
  Sex: Male
  Weight: 83.6 kg

DRUGS (5)
  1. MARAVIROC [Suspect]
     Indication: HIV INFECTION
     Dosage: 150MG TWICE PER DAY
     Route: 048
     Dates: start: 20100925
  2. BUPROPION HYDROCHLORIDE [Concomitant]
     Dates: start: 20091008
  3. CYCLOBENZAPRINE [Concomitant]
     Dates: start: 20100913
  4. BACTRIM [Concomitant]
     Dates: start: 20120808
  5. TESSALON PERLES [Concomitant]
     Dates: start: 20120808

REACTIONS (1)
  - Basal cell carcinoma [Not Recovered/Not Resolved]
